FAERS Safety Report 9761251 (Version 3)
Quarter: 2014Q1

REPORT INFORMATION
  Report Type: Spontaneous
  Country: US (occurrence: US)
  Receive Date: 20131216
  Receipt Date: 20140206
  Transmission Date: 20141002
  Serious: Yes (Other)
  Sender: FDA-Public Use
  Company Number: US-PFIZER INC-2013355920

PATIENT
  Sex: Female

DRUGS (3)
  1. LIPITOR [Suspect]
     Dosage: UNK
  2. GLUCOTROL XL [Suspect]
     Dosage: UNK
  3. PROCARDIA XL [Suspect]
     Dosage: UNK
     Dates: end: 201312

REACTIONS (3)
  - Nephrolithiasis [Unknown]
  - Renal disorder [Unknown]
  - Influenza [Unknown]
